FAERS Safety Report 8916162 (Version 2)
Quarter: 2012Q4

REPORT INFORMATION
  Report Type: 
  Country: US (occurrence: US)
  Receive Date: 20121120
  Receipt Date: 20121123
  Transmission Date: 20130627
  Serious: Yes (Hospitalization)
  Sender: FDA-Public Use
  Company Number: PHEH2012US022514

PATIENT
  Sex: Male
  Weight: 129.25 kg

DRUGS (10)
  1. TASIGNA [Suspect]
     Indication: CHRONIC MYELOID LEUKAEMIA
     Dosage: 300 mg, BID
     Route: 048
  2. LYRICA [Concomitant]
     Dosage: 25 mg, UNK
  3. PRAVASTATIN [Concomitant]
     Dosage: 10 mg, UNK
  4. HYDROCORT [Concomitant]
     Dosage: 10 mg, UNK
  5. GLYBURIDE [Concomitant]
     Dosage: 5 mg, UNK
  6. OXYBUTYNIN [Concomitant]
     Dosage: 5 mg, UNK
  7. LEVOTHYROXIN [Concomitant]
     Dosage: 25 ug, UNK
  8. LOSARTAN POTASSIUM [Concomitant]
     Dosage: 25 mg, UNK
  9. KEPPRA [Concomitant]
     Dosage: 250 mg, UNK
  10. ASPIRIN [Concomitant]
     Dosage: 81 mg, UNK

REACTIONS (11)
  - Urosepsis [Unknown]
  - Convulsion [Unknown]
  - Kidney infection [Not Recovered/Not Resolved]
  - Myocardial infarction [Unknown]
  - Localised infection [Unknown]
  - Anaemia [Unknown]
  - Dehydration [Recovering/Resolving]
  - Dizziness [Recovering/Resolving]
  - Retching [Recovering/Resolving]
  - Fatigue [Unknown]
  - Blood creatinine increased [Not Recovered/Not Resolved]
